FAERS Safety Report 7197775-8 (Version None)
Quarter: 2010Q4

REPORT INFORMATION
  Report Type: 
  Country: None (occurrence: None)
  Receive Date: 20101208
  Receipt Date: 20101202
  Transmission Date: 20110411
  Serious: Yes (Hospitalization, Other)
  Sender: FDA-Public Use
  Company Number: 2010SP012073

PATIENT
  Age: 38 Year
  Weight: 80.7403 kg

DRUGS (1)
  1. NUVARING [Suspect]
     Indication: CONTRACEPTION
     Dates: start: 20070101, end: 20080201

REACTIONS (20)
  - ALCOHOL USE [None]
  - ANTINUCLEAR ANTIBODY POSITIVE [None]
  - ANTITHROMBIN III INCREASED [None]
  - BACK PAIN [None]
  - BLOOD CREATININE INCREASED [None]
  - BLOOD UREA INCREASED [None]
  - CEREBROVASCULAR ACCIDENT [None]
  - DIARRHOEA [None]
  - EMBOLIC CEREBRAL INFARCTION [None]
  - FEELING DRUNK [None]
  - HEPATIC STEATOSIS [None]
  - HYPERCOAGULATION [None]
  - LOSS OF CONSCIOUSNESS [None]
  - MUSCULOSKELETAL CHEST PAIN [None]
  - PULMONARY EMBOLISM [None]
  - SINUS TACHYCARDIA [None]
  - THROMBOSIS [None]
  - TROPONIN INCREASED [None]
  - VAGINITIS BACTERIAL [None]
  - WHITE BLOOD CELL COUNT INCREASED [None]
